FAERS Safety Report 9413873 (Version 1)
Quarter: 2013Q3

REPORT INFORMATION
  Report Type: Spontaneous
  Country: US (occurrence: US)
  Receive Date: 20130723
  Receipt Date: 20130723
  Transmission Date: 20140515
  Serious: No
  Sender: FDA-Public Use
  Company Number: US-B.I. PHARMACEUTICALS,INC./RIDGEFIELD-2013-BI-21169BP

PATIENT
  Sex: Female

DRUGS (3)
  1. COMBIVENT [Suspect]
     Indication: CYSTIC FIBROSIS
     Dosage: STRENGTH: 20 MCG / 100 MCG; DAILY DOSE: 80 MCG / 400 MCG
     Route: 055
     Dates: start: 201306
  2. ALBUTEROL [Concomitant]
     Indication: CYSTIC FIBROSIS
     Dosage: (INHALATION AEROSOL)
     Route: 055
  3. COMBIVENT INHALATION AERSOL [Concomitant]
     Indication: CYSTIC FIBROSIS
     Dosage: SRENGTH:18MCG/103

REACTIONS (2)
  - Off label use [Not Recovered/Not Resolved]
  - Cough [Not Recovered/Not Resolved]
